FAERS Safety Report 8366667-0 (Version None)
Quarter: 2012Q1

REPORT INFORMATION
  Report Type: 
  Country: None (occurrence: None)
  Receive Date: 20120323
  Receipt Date: 20110816
  Transmission Date: 20120608
  Serious: Yes (Other)
  Sender: FDA-Public Use
  Company Number: 163-21880-11041235

PATIENT
  Age: 71 Year
  Sex: Female

DRUGS (10)
  1. THYROID TAB [Concomitant]
  2. PRILOSEC [Concomitant]
  3. CRANBERRY (CRANBERRY BERCO) [Concomitant]
  4. MULTIVITAMIN [Concomitant]
  5. BENICAR HCT [Concomitant]
  6. FEMARA [Concomitant]
  7. NEURONTIN [Concomitant]
  8. REVLIMID [Suspect]
     Indication: MULTIPLE MYELOMA
     Dosage: 25 MG, DAILY X21 DAYS, PO ; 25 MG, DAILY X21 DAYS, PO ; 10 MG, 1 IN 1 D, PO
     Route: 048
     Dates: start: 20110112
  9. REVLIMID [Suspect]
     Indication: MULTIPLE MYELOMA
     Dosage: 25 MG, DAILY X21 DAYS, PO ; 25 MG, DAILY X21 DAYS, PO ; 10 MG, 1 IN 1 D, PO
     Route: 048
     Dates: start: 20070720, end: 20110311
  10. REVLIMID [Suspect]
     Indication: MULTIPLE MYELOMA
     Dosage: 25 MG, DAILY X21 DAYS, PO ; 25 MG, DAILY X21 DAYS, PO ; 10 MG, 1 IN 1 D, PO
     Route: 048
     Dates: start: 20110805

REACTIONS (2)
  - WHITE BLOOD CELL COUNT DECREASED [None]
  - PLATELET COUNT DECREASED [None]
